FAERS Safety Report 10042684 (Version 1)
Quarter: 2014Q1

REPORT INFORMATION
  Report Type: Spontaneous
  Country: CA (occurrence: CA)
  Receive Date: 20140327
  Receipt Date: 20140327
  Transmission Date: 20141002
  Serious: Yes (Death, Hospitalization)
  Sender: FDA-Public Use
  Company Number: CA-MYLANLABS-2014S1006370

PATIENT
  Age: 74 Year
  Sex: Female

DRUGS (8)
  1. MIRTAZAPINE [Suspect]
     Indication: MAJOR DEPRESSION
     Dosage: 30 MG/D
     Route: 065
  2. FUROSEMIDE [Suspect]
     Indication: OEDEMA PERIPHERAL
     Dosage: 40 MG/D
     Route: 065
  3. SODIUM DIOCTYL SULFOSUCCINATE [Suspect]
     Indication: CONSTIPATION
     Dosage: 200 MG/D
     Route: 065
  4. LACTULOSE [Suspect]
     Indication: CONSTIPATION
     Dosage: 30 ML/D
     Route: 065
  5. BISACODYL [Suspect]
     Indication: CONSTIPATION
     Dosage: 10 MG/D PRN
     Route: 065
  6. SODIUM PHOSPHATE [Suspect]
     Indication: CONSTIPATION
     Dosage: 130 ML/D PRN
     Route: 065
  7. DIMENHYDRINATE [Suspect]
     Indication: VOMITING
     Dosage: PRN
     Route: 065
  8. MORPHINE [Suspect]
     Indication: PAIN
     Dosage: PRN
     Route: 065

REACTIONS (7)
  - Colonic pseudo-obstruction [Recovering/Resolving]
  - Condition aggravated [Recovering/Resolving]
  - Intestinal obstruction [Recovering/Resolving]
  - Delirium [Unknown]
  - Urinary retention [Unknown]
  - Mutism [Unknown]
  - Myocardial infarction [Fatal]
